FAERS Safety Report 9536677 (Version 1)
Quarter: 2013Q3

REPORT INFORMATION
  Report Type: Spontaneous
  Country: US (occurrence: None)
  Receive Date: 20130918
  Receipt Date: 20130918
  Transmission Date: 20140515
  Serious: No
  Sender: FDA-Public Use
  Company Number: None

PATIENT
  Age: 24 Year
  Sex: Female
  Weight: 65.32 kg

DRUGS (1)
  1. NEXPLANON [Suspect]
     Dates: end: 20130903

REACTIONS (10)
  - Abdominal pain [None]
  - Chest pain [None]
  - Back pain [None]
  - Panic attack [None]
  - Headache [None]
  - Depression [None]
  - Mood swings [None]
  - Nausea [None]
  - Vision blurred [None]
  - Amenorrhoea [None]
